FAERS Safety Report 14638058 (Version 1)
Quarter: 2018Q1

REPORT INFORMATION
  Report Type: Spontaneous
  Country: GR (occurrence: GR)
  Receive Date: 20180314
  Receipt Date: 20180314
  Transmission Date: 20180509
  Serious: Yes (Other)
  Sender: FDA-Public Use
  Company Number: PHHY2018GR036459

PATIENT
  Age: 20 Year
  Sex: Female

DRUGS (1)
  1. AMOXICILLIN, CLAVULANATE [Suspect]
     Active Substance: AMOXICILLIN\CLAVULANATE POTASSIUM
     Indication: INFECTIOUS MONONUCLEOSIS
     Dosage: UNK
     Route: 065

REACTIONS (5)
  - Rash macular [Recovered/Resolved]
  - Splenomegaly [Recovered/Resolved]
  - Salivary hypersecretion [Recovered/Resolved]
  - Infectious mononucleosis [Recovered/Resolved]
  - Peritonsillar abscess [Recovered/Resolved]
